FAERS Safety Report 5698577-1 (Version None)
Quarter: 2008Q2

REPORT INFORMATION
  Report Type: 
  Country: None (occurrence: None)
  Receive Date: 20080408
  Receipt Date: 20061005
  Transmission Date: 20081010
  Serious: No
  Sender: FDA-Public Use
  Company Number: US-BAYER-US-2006-030343

PATIENT
  Age: 54 Year
  Sex: Female
  Weight: 58 kg

DRUGS (1)
  1. MENOSTAR [Suspect]
     Indication: HORMONE REPLACEMENT THERAPY
     Route: 062
     Dates: start: 20040101

REACTIONS (4)
  - EPISTAXIS [None]
  - FIBROCYSTIC BREAST DISEASE [None]
  - HEADACHE [None]
  - MIGRAINE [None]
